FAERS Safety Report 20382709 (Version 1)
Quarter: 2022Q1

REPORT INFORMATION
  Report Type: Spontaneous
  Country: US (occurrence: None)
  Receive Date: 20220127
  Receipt Date: 20220127
  Transmission Date: 20220423
  Serious: Yes (Hospitalization)
  Sender: FDA-Public Use
  Company Number: None

PATIENT
  Sex: Female

DRUGS (8)
  1. TADALAFIL [Suspect]
     Active Substance: TADALAFIL
  2. DEBLITANE [Concomitant]
  3. GABAPENTIN [Concomitant]
  4. ONDANSETRON TAB [Concomitant]
  5. OPSUMIT TAB [Concomitant]
  6. REMODULIN INJ [Concomitant]
  7. TADALAFIL TAB [Concomitant]
  8. XARELTO TAB [Concomitant]

REACTIONS (1)
  - Lung disorder [None]
